FAERS Safety Report 14802715 (Version 1)
Quarter: 2018Q2

REPORT INFORMATION
  Report Type: Spontaneous
  Country: US (occurrence: US)
  Receive Date: 20180424
  Receipt Date: 20180424
  Transmission Date: 20180711
  Serious: Yes (Other)
  Sender: FDA-Public Use
  Company Number: US-PFIZER INC-2018161154

PATIENT
  Sex: Male
  Weight: 123.8 kg

DRUGS (3)
  1. REVATIO [Suspect]
     Active Substance: SILDENAFIL CITRATE
     Indication: CARDIAC DISORDER
     Dosage: 20MG OR 40MG FOUR TIMES A DAY
     Dates: start: 2014
  2. COUMADIN [Concomitant]
     Active Substance: WARFARIN SODIUM
  3. COLCRYS [Suspect]
     Active Substance: COLCHICINE
     Indication: GOUT
     Dosage: 0.6 MG, AS NEEDED
     Dates: start: 2015

REACTIONS (6)
  - Product use in unapproved indication [Unknown]
  - Product use issue [Unknown]
  - Gait disturbance [Unknown]
  - Loss of personal independence in daily activities [Unknown]
  - Heart rate decreased [Unknown]
  - Gout [Unknown]
